FAERS Safety Report 14280450 (Version 2)
Quarter: 2018Q1

REPORT INFORMATION
  Report Type: Report from Study
  Country: None (occurrence: IL)
  Receive Date: 20171213
  Receipt Date: 20180321
  Transmission Date: 20180508
  Serious: Yes (Hospitalization, Other)
  Sender: FDA-Public Use
  Company Number: IL-ABBVIE-17K-082-2188856-00

PATIENT
  Sex: Male

DRUGS (2)
  1. HUMIRA [Suspect]
     Active Substance: ADALIMUMAB
     Indication: CROHN^S DISEASE
     Route: 058
  2. HUMIRA [Suspect]
     Active Substance: ADALIMUMAB
     Indication: CROHN^S DISEASE
     Route: 058
     Dates: start: 20140401, end: 20171114

REACTIONS (11)
  - Diarrhoea haemorrhagic [Recovering/Resolving]
  - Asthenia [Unknown]
  - Headache [Unknown]
  - Musculoskeletal stiffness [Unknown]
  - Haematochezia [Unknown]
  - Exostosis [Unknown]
  - Confusional state [Unknown]
  - Back pain [Unknown]
  - Intervertebral disc protrusion [Recovered/Resolved]
  - Crohn^s disease [Not Recovered/Not Resolved]
  - Dizziness [Unknown]
